FAERS Safety Report 24917972 (Version 4)
Quarter: 2025Q4

REPORT INFORMATION
  Report Type: Spontaneous
  Country: CA (occurrence: CA)
  Receive Date: 20250203
  Receipt Date: 20251125
  Transmission Date: 20260117
  Serious: Yes (Death, Hospitalization, Other)
  Sender: NOVARTIS
  Company Number: CA-002147023-NVSC2025CA017738

PATIENT
  Age: 80 Year
  Sex: Female
  Weight: 61 kg

DRUGS (7)
  1. KISQALI [Suspect]
     Active Substance: RIBOCICLIB SUCCINATE
     Indication: Breast cancer metastatic
     Dosage: 400 MG, QD (21 DAYS OUT OF 28-DAY CYCLE)
     Route: 048
     Dates: start: 20240926, end: 20241030
  2. KISQALI [Suspect]
     Active Substance: RIBOCICLIB SUCCINATE
     Dosage: 200 MG, QD (21 DAYS OUT OF 28-DAY CYCLE)
     Route: 048
     Dates: start: 20241030, end: 20241217
  3. FULVESTRANT [Concomitant]
     Active Substance: FULVESTRANT
     Indication: Breast cancer metastatic
     Dosage: 500 MG(ON DAY 0, 14, 28, LATER EVERY 28 DAYS)
     Route: 030
     Dates: start: 20250107, end: 20250107
  4. CALCIUM [Concomitant]
     Active Substance: CALCIUM
     Indication: Product used for unknown indication
     Dosage: 500 MG, QD
     Route: 065
  5. VITAMIN D [Concomitant]
     Active Substance: VITAMIN D NOS
     Indication: Product used for unknown indication
     Dosage: UNK, 100 UNITS
     Route: 065
  6. ACTONEL [Concomitant]
     Active Substance: RISEDRONATE SODIUM
     Indication: Product used for unknown indication
     Dosage: 35 MG, QW
     Route: 065
  7. TYLENOL [Concomitant]
     Active Substance: ACETAMINOPHEN
     Indication: Product used for unknown indication
     Dosage: UNK
     Route: 065

REACTIONS (22)
  - Drug-induced liver injury [Fatal]
  - Jaundice [Fatal]
  - Nausea [Fatal]
  - Pulmonary alveolar haemorrhage [Fatal]
  - Oedema peripheral [Fatal]
  - Mental status changes [Fatal]
  - Abdominal pain [Fatal]
  - Hypoglycaemia [Fatal]
  - Hepatic failure [Fatal]
  - Acute kidney injury [Fatal]
  - Nephritis [Unknown]
  - Hyperbilirubinaemia [Unknown]
  - Hypokalaemia [Unknown]
  - Neutropenia [Unknown]
  - Pneumonia [Unknown]
  - Encephalopathy [Unknown]
  - Acute pulmonary oedema [Unknown]
  - Tachycardia [Unknown]
  - General physical health deterioration [Unknown]
  - Metabolic acidosis [Unknown]
  - Haemorrhage [Unknown]
  - Dyspnoea [Unknown]

NARRATIVE: CASE EVENT DATE: 20241001
